FAERS Safety Report 15867696 (Version 5)
Quarter: 2019Q1

REPORT INFORMATION
  Report Type: Report from Study
  Country: DE (occurrence: DE)
  Receive Date: 20190125
  Receipt Date: 20190322
  Transmission Date: 20190417
  Serious: Yes (Death, Hospitalization, Other)
  Sender: FDA-Public Use
  Company Number: DE-PORTOLA PHARMACEUTICALS, INC.-2019DE000005

PATIENT
  Age: 85 Year
  Sex: Female

DRUGS (13)
  1. PANTOPRAZOLE [Concomitant]
     Active Substance: PANTOPRAZOLE
  2. METAMIZOLE [Concomitant]
     Active Substance: METAMIZOLE
  3. ANDEXXA [Suspect]
     Active Substance: ANDEXANET ALFA
     Indication: PROCOAGULANT THERAPY
     Dosage: 800 MG, SINGLE BOLUS
     Route: 040
     Dates: start: 20190114, end: 20190114
  4. METOPROLOL. [Concomitant]
     Active Substance: METOPROLOL
  5. ANDEXXA [Suspect]
     Active Substance: ANDEXANET ALFA
     Dosage: 960 MG, SINGLE INFUSION
     Route: 042
     Dates: start: 20190114, end: 20190114
  6. LERCANIDIPINE [Concomitant]
     Active Substance: LERCANIDIPINE
  7. DESLORATADINE. [Concomitant]
     Active Substance: DESLORATADINE
     Dosage: PRN
  8. XARELTO [Concomitant]
     Active Substance: RIVAROXABAN
     Dosage: 20 MG, QD
     Dates: end: 20190114
  9. CANDESARTAN. [Concomitant]
     Active Substance: CANDESARTAN
  10. URAPIDIL [Concomitant]
     Active Substance: URAPIDIL
  11. CINNARIZINE W/DIMENHYDRINATE [Concomitant]
     Dosage: PRN
  12. HYDROMORPHONE [Concomitant]
     Active Substance: HYDROMORPHONE
  13. TIOTROPIUM                         /01585202/ [Concomitant]
     Route: 055

REACTIONS (3)
  - Myocardial infarction [Not Recovered/Not Resolved]
  - CNS ventriculitis [Not Recovered/Not Resolved]
  - Terminal state [Fatal]

NARRATIVE: CASE EVENT DATE: 20190117
